FAERS Safety Report 13656687 (Version 1)
Quarter: 2017Q2

REPORT INFORMATION
  Report Type: Spontaneous
  Country: NL (occurrence: NL)
  Receive Date: 20170615
  Receipt Date: 20170615
  Transmission Date: 20170830
  Serious: Yes (Death, Other)
  Sender: FDA-Public Use
  Company Number: NL-CELGENEUS-NLD-20170600086

PATIENT

DRUGS (1)
  1. POMALIDOMIDE [Suspect]
     Active Substance: POMALIDOMIDE
     Indication: PLASMA CELL MYELOMA
     Dosage: 4 MG
     Route: 048

REACTIONS (10)
  - Gastrointestinal disorder [Unknown]
  - Death [Fatal]
  - Adverse event [Unknown]
  - Toxicity to various agents [Unknown]
  - Febrile neutropenia [Unknown]
  - Haematotoxicity [Unknown]
  - Renal disorder [Unknown]
  - Plasma cell myeloma [Unknown]
  - Therapy non-responder [Unknown]
  - Infection [Unknown]
